FAERS Safety Report 6531592-4 (Version None)
Quarter: 2010Q1

REPORT INFORMATION
  Report Type: 
  Country: None (occurrence: None)
  Receive Date: 20100108
  Receipt Date: 20090925
  Transmission Date: 20100710
  Serious: No
  Sender: FDA-Public Use
  Company Number: A0829427A

PATIENT
  Age: 68 Year
  Sex: Female

DRUGS (3)
  1. EXTINA [Suspect]
     Indication: ROSACEA
     Dosage: 2PCT PER DAY
     Route: 061
     Dates: start: 20090817, end: 20090831
  2. EXTINA [Suspect]
     Dosage: 2PCT PER DAY
     Route: 061
     Dates: start: 20090918, end: 20090922
  3. METROGEL [Suspect]
     Indication: ROSACEA
     Route: 061
     Dates: start: 20090819

REACTIONS (5)
  - APPLICATION SITE DRYNESS [None]
  - INAPPROPRIATE SCHEDULE OF DRUG ADMINISTRATION [None]
  - OFF LABEL USE [None]
  - PAIN OF SKIN [None]
  - SKIN BURNING SENSATION [None]
